FAERS Safety Report 7435546-5 (Version None)
Quarter: 2011Q2

REPORT INFORMATION
  Report Type: 
  Country: None (occurrence: None)
  Receive Date: 20110418
  Receipt Date: 20110404
  Transmission Date: 20111010
  Serious: Yes (Hospitalization)
  Sender: FDA-Public Use
  Company Number: 20110185

PATIENT
  Age: 65 Year
  Sex: Female
  Weight: 101.1521 kg

DRUGS (14)
  1. IMODIUM [Concomitant]
  2. FENOFIBRATE [Concomitant]
  3. ZETIA [Concomitant]
  4. LASIX [Concomitant]
  5. ATENOLOL [Concomitant]
  6. VENOFER [Suspect]
     Indication: IRON DEFICIENCY ANAEMIA
     Dosage: 200 MG , 5 TIMES PER TOTAL INTRAVENOUS
     Route: 042
     Dates: start: 20110201, end: 20110215
  7. EVISTA [Concomitant]
  8. NAPROXEN [Concomitant]
  9. NEXIUM [Concomitant]
  10. GLUCOPHAGE [Concomitant]
  11. ACCUPRIL [Concomitant]
  12. LYRICA [Concomitant]
  13. PAXIL [Concomitant]
  14. CALCIUM [Concomitant]

REACTIONS (2)
  - RENAL FAILURE ACUTE [None]
  - DIARRHOEA [None]
